FAERS Safety Report 9278861 (Version 1)
Quarter: 2013Q2

REPORT INFORMATION
  Report Type: Spontaneous
  Country: GB (occurrence: None)
  Receive Date: 20130501
  Receipt Date: 20130501
  Transmission Date: 20140414
  Serious: Yes (Other)
  Sender: FDA-Public Use
  Company Number: AUR-APL-2013-03453

PATIENT
  Age: 49 Year
  Sex: Female

DRUGS (1)
  1. CEFTAZIDIME [Suspect]
     Indication: BRONCHIOLITIS
     Route: 042
     Dates: start: 20130409, end: 20130409

REACTIONS (2)
  - Rash erythematous [None]
  - Macule [None]
